FAERS Safety Report 7282002-3 (Version None)
Quarter: 2011Q1

REPORT INFORMATION
  Report Type: 
  Country: None (occurrence: None)
  Receive Date: 20110208
  Receipt Date: 20110128
  Transmission Date: 20110831
  Serious: Yes (Hospitalization)
  Sender: FDA-Public Use
  Company Number: US-BAXTER-2011BH002435

PATIENT
  Age: 4 Year
  Sex: Male
  Weight: 14 kg

DRUGS (20)
  1. HEPARIN [Concomitant]
     Indication: PRODUCT USED FOR UNKNOWN INDICATION
     Route: 065
     Dates: start: 20100119
  2. NEURONTIN [Concomitant]
     Indication: PRODUCT USED FOR UNKNOWN INDICATION
     Route: 065
     Dates: start: 20100119
  3. IFOSFAMIDE [Suspect]
     Route: 042
     Dates: start: 20100120, end: 20100124
  4. OXYCODONE HCL [Concomitant]
     Indication: PRODUCT USED FOR UNKNOWN INDICATION
     Route: 065
     Dates: start: 20100122, end: 20100124
  5. COTRIM [Concomitant]
     Indication: PRODUCT USED FOR UNKNOWN INDICATION
     Route: 065
     Dates: start: 20100123
  6. MESNA [Concomitant]
     Route: 065
     Dates: start: 20100208, end: 20100212
  7. ACETAMINOPHEN [Concomitant]
     Indication: PRODUCT USED FOR UNKNOWN INDICATION
     Route: 065
     Dates: start: 20100221
  8. IFOSFAMIDE [Suspect]
     Route: 042
     Dates: start: 20100208, end: 20100208
  9. DIPHENHYDRAMINE [Concomitant]
     Indication: PRODUCT USED FOR UNKNOWN INDICATION
     Route: 065
     Dates: start: 20100207
  10. IFOSFAMIDE [Suspect]
     Indication: RHABDOMYOSARCOMA RECURRENT
     Route: 042
     Dates: start: 20100209, end: 20100212
  11. COLACE [Concomitant]
     Indication: PRODUCT USED FOR UNKNOWN INDICATION
     Route: 065
     Dates: start: 20100119
  12. DOCUSATE [Concomitant]
     Indication: PRODUCT USED FOR UNKNOWN INDICATION
     Route: 065
     Dates: start: 20100120
  13. MIRALAX [Concomitant]
     Indication: PRODUCT USED FOR UNKNOWN INDICATION
     Route: 065
     Dates: start: 20100120
  14. ETOPOSIDE [Suspect]
     Indication: RHABDOMYOSARCOMA RECURRENT
     Route: 042
     Dates: start: 20100208, end: 20100212
  15. SCOPOLAMINE [Concomitant]
     Indication: PRODUCT USED FOR UNKNOWN INDICATION
     Route: 065
     Dates: start: 20100119
  16. MESNA [Concomitant]
     Indication: PRODUCT USED FOR UNKNOWN INDICATION
     Route: 065
     Dates: start: 20100120, end: 20100124
  17. STUDY DRUG [Suspect]
     Indication: SARCOMA
     Route: 042
     Dates: start: 20100208, end: 20100208
  18. ETOPOSIDE [Suspect]
     Route: 042
     Dates: start: 20100120, end: 20100124
  19. METHADONE HYDROCHLORIDE [Concomitant]
     Indication: PRODUCT USED FOR UNKNOWN INDICATION
     Route: 065
     Dates: start: 20100120
  20. ZOFRAN [Concomitant]
     Indication: PRODUCT USED FOR UNKNOWN INDICATION
     Route: 065
     Dates: start: 20100120

REACTIONS (3)
  - FEBRILE NEUTROPENIA [None]
  - WHITE BLOOD CELL COUNT DECREASED [None]
  - RHABDOMYOSARCOMA RECURRENT [None]
